FAERS Safety Report 6297721-5 (Version None)
Quarter: 2009Q3

REPORT INFORMATION
  Report Type: 
  Country: None (occurrence: None)
  Receive Date: 20090805
  Receipt Date: 20090722
  Transmission Date: 20100115
  Serious: Yes (Hospitalization)
  Sender: FDA-Public Use
  Company Number: US-ROCHE-638016

PATIENT
  Sex: Female

DRUGS (2)
  1. PEGASYS [Suspect]
     Dosage: FORM: PRE-FILLED SYRINGE
     Route: 058
     Dates: start: 20090514, end: 20090601
  2. RIBAVIRIN [Concomitant]
     Route: 048
     Dates: start: 20090514, end: 20090601

REACTIONS (2)
  - CARDIAC DISORDER [None]
  - TREMOR [None]
